FAERS Safety Report 11884086 (Version 2)
Quarter: 2016Q1

REPORT INFORMATION
  Report Type: Spontaneous
  Country: US (occurrence: US)
  Receive Date: 20160102
  Receipt Date: 20160104
  Transmission Date: 20160526
  Serious: No
  Sender: FDA-Public Use
  Company Number: US-009507513-1512USA011676

PATIENT
  Sex: Female
  Weight: 47.62 kg

DRUGS (1)
  1. NEXPLANON [Suspect]
     Active Substance: ETONOGESTREL
     Indication: CONTRACEPTION
     Dosage: 1 ROD 3 YEARS, INSERTED IN LEFT ARM
     Route: 059
     Dates: start: 20151020

REACTIONS (4)
  - Depressed mood [Unknown]
  - Haemorrhage [Unknown]
  - Mood altered [Unknown]
  - Hunger [Unknown]

NARRATIVE: CASE EVENT DATE: 2015
